FAERS Safety Report 7825960-8 (Version None)
Quarter: 2011Q4

REPORT INFORMATION
  Report Type: 
  Country: None (occurrence: None)
  Receive Date: 20111019
  Receipt Date: 20111012
  Transmission Date: 20120403
  Serious: Yes (Other)
  Sender: FDA-Public Use
  Company Number: US-ROCHE-1004502

PATIENT
  Age: 48 Year
  Sex: Female

DRUGS (26)
  1. DAPSONE [Suspect]
     Indication: BEHCET'S SYNDROME
  2. PREGABALIN [Concomitant]
  3. ACYCLOVIR [Concomitant]
  4. MYCOPHENOLATE MOFETIL (CELLCEPT) [Suspect]
     Indication: BEHCET'S SYNDROME
  5. LEUKERAN [Suspect]
     Indication: BEHCET'S SYNDROME
  6. IMURAN [Suspect]
     Indication: BEHCET'S SYNDROME
  7. FOLIC ACID [Concomitant]
  8. FUROSEMIDE [Concomitant]
  9. TERBUTALINE SULFATE [Concomitant]
  10. ENBREL [Suspect]
     Indication: BEHCET'S SYNDROME
  11. PREDNISONE [Suspect]
     Indication: BEHCET'S SYNDROME
  12. ERYTHROMYCIN [Concomitant]
  13. METHOTREXATE [Suspect]
     Indication: BEHCET'S SYNDROME
  14. ESOMEPRAZOLE SODIUM [Concomitant]
  15. PENTOXIFYLLINE [Concomitant]
  16. PLAQUENIL [Suspect]
     Indication: BEHCET'S SYNDROME
  17. CYCLOSPORINE [Suspect]
     Indication: BEHCET'S SYNDROME
  18. REMICADE [Suspect]
     Indication: BEHCET'S SYNDROME
  19. THEOPHYLLINE [Concomitant]
  20. FENTANYL-100 [Concomitant]
  21. RITUXAN [Suspect]
     Indication: BEHCET'S SYNDROME
  22. COLCHICINE [Suspect]
     Indication: BEHCET'S SYNDROME
  23. CYTOXAN [Suspect]
     Indication: BEHCET'S SYNDROME
  24. ARAVA [Suspect]
     Indication: BEHCET'S SYNDROME
  25. FLUTICASONE PROPIONATE/SALMETEROL [Concomitant]
  26. SERTRALINE HYDROCHLORIDE [Concomitant]

REACTIONS (1)
  - SQUAMOUS CELL CARCINOMA OF SKIN [None]
